FAERS Safety Report 15429982 (Version 2)
Quarter: 2018Q4

REPORT INFORMATION
  Report Type: Spontaneous
  Country: US (occurrence: US)
  Receive Date: 20180926
  Receipt Date: 20181015
  Transmission Date: 20190204
  Serious: Yes (Hospitalization)
  Sender: FDA-Public Use
  Company Number: US-PFIZER INC-2018381541

PATIENT
  Age: 67 Year
  Sex: Male
  Weight: 98.87 kg

DRUGS (5)
  1. LYRICA [Suspect]
     Active Substance: PREGABALIN
     Indication: NEUROPATHY PERIPHERAL
     Dosage: 1000 MG, DAILY (200MG, FIVE TIMES DAILY THREE CAPSULES EVERY MORNING AND TWO CAPSULES AT NIGHT)
     Route: 048
  2. COSENTYX [Concomitant]
     Active Substance: SECUKINUMAB
     Indication: PSORIATIC ARTHROPATHY
     Dosage: 2 DF, MONTHLY [TAKES 2 SHOTS EVERY MONTH]
  3. LYRICA [Suspect]
     Active Substance: PREGABALIN
     Dosage: UNK, 3X/DAY(3 A DAY)
  4. LYRICA [Suspect]
     Active Substance: PREGABALIN
     Dosage: 3 DF, UNK
  5. LYRICA [Suspect]
     Active Substance: PREGABALIN
     Dosage: UNK

REACTIONS (11)
  - Condition aggravated [Not Recovered/Not Resolved]
  - Feeling abnormal [Unknown]
  - Intentional product misuse [Unknown]
  - Weight decreased [Unknown]
  - Frostbite [Not Recovered/Not Resolved]
  - Pneumonia [Unknown]
  - Hypoaesthesia [Not Recovered/Not Resolved]
  - Neuropathy peripheral [Not Recovered/Not Resolved]
  - Pain [Not Recovered/Not Resolved]
  - Overdose [Unknown]
  - Burning sensation [Not Recovered/Not Resolved]

NARRATIVE: CASE EVENT DATE: 201803
